FAERS Safety Report 7403481-4 (Version None)
Quarter: 2011Q2

REPORT INFORMATION
  Report Type: 
  Country: None (occurrence: None)
  Receive Date: 20110408
  Receipt Date: 20110404
  Transmission Date: 20111010
  Serious: Yes (Disabling)
  Sender: FDA-Public Use
  Company Number: D0070884A

PATIENT
  Sex: Male
  Weight: 78 kg

DRUGS (5)
  1. LYRICA [Suspect]
     Indication: EPILEPSY
     Dosage: 225MG TWICE PER DAY
     Route: 048
     Dates: start: 20070301
  2. KEPPRA [Suspect]
     Indication: EPILEPSY
     Dosage: 1000MG TWICE PER DAY
     Route: 048
     Dates: start: 20070101
  3. OXCARBAZEPINE [Suspect]
     Indication: EPILEPSY
     Route: 065
  4. LAMOTRIGINE [Suspect]
     Indication: EPILEPSY
     Route: 065
  5. ERGENYL CHRONO [Suspect]
     Indication: EPILEPSY
     Dosage: 1000MG TWICE PER DAY
     Route: 048
     Dates: start: 20050101

REACTIONS (1)
  - OPTIC ATROPHY [None]
